FAERS Safety Report 24180303 (Version 1)
Quarter: 2024Q3

REPORT INFORMATION
  Report Type: Spontaneous
  Country: US (occurrence: None)
  Receive Date: 20240806
  Receipt Date: 20240806
  Transmission Date: 20241017
  Serious: Yes (Hospitalization)
  Sender: Public
  Company Number: None

PATIENT
  Sex: Female

DRUGS (1)
  1. MYCOPHENOLIC ACID [Suspect]
     Active Substance: MYCOPHENOLIC ACID
     Indication: Renal transplant
     Dates: start: 20170222

REACTIONS (5)
  - Infection [None]
  - Urinary tract infection [None]
  - Sepsis [None]
  - Therapy interrupted [None]
  - Product availability issue [None]
